FAERS Safety Report 14594543 (Version 1)
Quarter: 2018Q1

REPORT INFORMATION
  Report Type: Spontaneous
  Country: DE (occurrence: DE)
  Receive Date: 20180302
  Receipt Date: 20180302
  Transmission Date: 20180509
  Serious: Yes (Hospitalization)
  Sender: FDA-Public Use
  Company Number: DE-SA-2018SA046013

PATIENT
  Age: 59 Year
  Sex: Female

DRUGS (2)
  1. VOLON A40 [Suspect]
     Active Substance: TRIAMCINOLONE ACETONIDE
     Indication: FACET JOINT BLOCK
     Route: 065
  2. ROPIVACAINE [Suspect]
     Active Substance: ROPIVACAINE
     Indication: FACET JOINT BLOCK
     Route: 065

REACTIONS (3)
  - Speech disorder [Recovered/Resolved]
  - Muscle spasms [Recovered/Resolved]
  - Loss of consciousness [Recovered/Resolved]

NARRATIVE: CASE EVENT DATE: 20171221
